FAERS Safety Report 15542613 (Version 2)
Quarter: 2018Q4

REPORT INFORMATION
  Report Type: Spontaneous
  Country: US (occurrence: US)
  Receive Date: 20181023
  Receipt Date: 20181126
  Transmission Date: 20190205
  Serious: No
  Sender: FDA-Public Use
  Company Number: US-SA-2017SA011873

PATIENT
  Age: 75 Year
  Sex: Male

DRUGS (5)
  1. METFORMIN [Concomitant]
     Active Substance: METFORMIN HYDROCHLORIDE
     Dosage: UNK
  2. LANTUS SOLOSTAR [Suspect]
     Active Substance: INSULIN GLARGINE
     Dosage: 65 DF,QD
     Route: 065
     Dates: start: 2007
  3. LANTUS SOLOSTAR [Suspect]
     Active Substance: INSULIN GLARGINE
     Indication: TYPE 2 DIABETES MELLITUS
     Dosage: 65 DF,QD
     Route: 065
     Dates: start: 2007
  4. TOUJEO [Suspect]
     Active Substance: INSULIN GLARGINE
     Indication: TYPE 2 DIABETES MELLITUS
     Dosage: 65 IU EVERY PM
     Route: 065
     Dates: start: 20181012
  5. TOUJEO [Suspect]
     Active Substance: INSULIN GLARGINE
     Dosage: 65 IU EVERY PM
     Route: 065

REACTIONS (4)
  - Device issue [Unknown]
  - Blood glucose increased [Unknown]
  - Injection site pain [Unknown]
  - Intentional product misuse [Unknown]
